FAERS Safety Report 4815017-2 (Version None)
Quarter: 2005Q4

REPORT INFORMATION
  Report Type: 
  Country: None (occurrence: None)
  Receive Date: 20051028
  Receipt Date: 20051005
  Transmission Date: 20060501
  Serious: Yes (Hospitalization)
  Sender: FDA-Public Use
  Company Number: GR-ABBOTT-05P-066-0313215-00

PATIENT
  Age: 5 Year
  Sex: Female

DRUGS (3)
  1. KLARICID SUSPENSION [Suspect]
     Indication: RESPIRATORY TRACT INFECTION
     Dosage: 50MG/5ML
     Route: 048
     Dates: start: 20050929, end: 20051007
  2. CORTICOSTEROIDS [Suspect]
     Indication: RESPIRATORY TRACT INFECTION
     Dates: end: 20050929
  3. PREDNISOLONE [Concomitant]
     Indication: RESPIRATORY TRACT INFECTION
     Route: 048
     Dates: end: 20051001

REACTIONS (1)
  - HEPATOMEGALY [None]
